FAERS Safety Report 8115743-6 (Version None)
Quarter: 2012Q1

REPORT INFORMATION
  Report Type: 
  Country: None (occurrence: None)
  Receive Date: 20120206
  Receipt Date: 20120130
  Transmission Date: 20120608
  Serious: Yes (Death)
  Sender: FDA-Public Use
  Company Number: US-ROCHE-1033642

PATIENT
  Sex: Male
  Weight: 60 kg

DRUGS (1)
  1. AVASTIN [Suspect]
     Indication: METASTATIC NEOPLASM
     Route: 042
     Dates: start: 20100217

REACTIONS (1)
  - OESOPHAGEAL CANCER METASTATIC [None]
